FAERS Safety Report 6063651-7 (Version None)
Quarter: 2009Q1

REPORT INFORMATION
  Report Type: 
  Country: None (occurrence: None)
  Receive Date: 20090129
  Receipt Date: 20090113
  Transmission Date: 20090719
  Serious: Yes (Hospitalization)
  Sender: FDA-Public Use
  Company Number: KV200900080

PATIENT
  Age: 79 Year
  Sex: Male
  Weight: 72.6 kg

DRUGS (6)
  1. ISOSORBIDE MONONITRATE         (ISOSORBIDE MONONITRATE)        SR [Suspect]
     Indication: HEART VALVE REPLACEMENT
     Dosage: 30 MG, QD, ORAL
     Route: 048
  2. TEGRETOL [Concomitant]
  3. COUMADIN [Concomitant]
  4. NAMENDA [Concomitant]
  5. NORVASC [Concomitant]
  6. PLAVIX [Concomitant]

REACTIONS (3)
  - HEADACHE [None]
  - LOSS OF CONSCIOUSNESS [None]
  - PRODUCT QUALITY ISSUE [None]
